FAERS Safety Report 21952596 (Version 1)
Quarter: 2023Q1

REPORT INFORMATION
  Report Type: Spontaneous
  Country: DE (occurrence: DE)
  Receive Date: 20230203
  Receipt Date: 20230203
  Transmission Date: 20230417
  Serious: Yes (Other)
  Sender: FDA-Public Use
  Company Number: DE-EXELIXIS-CABO-22049022

PATIENT
  Sex: Male

DRUGS (1)
  1. CABOMETYX [Suspect]
     Active Substance: CABOZANTINIB S-MALATE
     Indication: Prophylaxis
     Dosage: 40 MG

REACTIONS (5)
  - Pulmonary embolism [Recovering/Resolving]
  - Gastritis [Recovering/Resolving]
  - Thrombosis [Recovering/Resolving]
  - Renal cancer metastatic [Recovering/Resolving]
  - Off label use [Unknown]
